FAERS Safety Report 21485378 (Version 1)
Quarter: 2022Q4

REPORT INFORMATION
  Report Type: Spontaneous
  Country: US (occurrence: None)
  Receive Date: 20221019
  Receipt Date: 20221019
  Transmission Date: 20230113
  Serious: Yes (Hospitalization)
  Sender: FDA-Public Use
  Company Number: None

PATIENT
  Age: 69 Year
  Sex: Male

DRUGS (1)
  1. PAXLOVID [Suspect]
     Active Substance: NIRMATRELVIR\RITONAVIR
     Indication: COVID-19 treatment

REACTIONS (6)
  - Haematuria [None]
  - Urinary tract infection [None]
  - Urinary retention [None]
  - Bladder obstruction [None]
  - Thrombosis [None]
  - Transfusion [None]

NARRATIVE: CASE EVENT DATE: 20221010
